FAERS Safety Report 7515842-3 (Version None)
Quarter: 2011Q2

REPORT INFORMATION
  Report Type: 
  Country: None (occurrence: None)
  Receive Date: 20110601
  Receipt Date: 20110528
  Transmission Date: 20111010
  Serious: No
  Sender: FDA-Public Use
  Company Number: US-PFIZER INC-2011115608

PATIENT
  Sex: Female
  Weight: 73 kg

DRUGS (4)
  1. TOPROL-XL [Suspect]
     Indication: CARDIAC DISORDER
     Dosage: 0.5 MG, DAILY
     Route: 048
     Dates: start: 20110517
  2. NORVASC [Suspect]
     Indication: CORONARY ARTERY DISEASE
     Dosage: 5 MG, DAILY
     Route: 048
     Dates: start: 20110517
  3. PLAVIX [Suspect]
     Indication: STENT PLACEMENT
     Dosage: 75 MG, DAILY
     Route: 048
     Dates: start: 20110517
  4. LIPITOR [Suspect]
     Indication: BLOOD CHOLESTEROL INCREASED
     Dosage: 80 MG, DAILY
     Route: 048
     Dates: start: 20110517

REACTIONS (2)
  - MUSCLE SPASMS [None]
  - PAIN IN EXTREMITY [None]
